FAERS Safety Report 12242163 (Version 5)
Quarter: 2016Q2

REPORT INFORMATION
  Report Type: Spontaneous
  Country: US (occurrence: US)
  Receive Date: 20160406
  Receipt Date: 20160531
  Transmission Date: 20160815
  Serious: Yes (Death, Hospitalization, Other)
  Sender: FDA-Public Use
  Company Number: US-PFIZER INC-2016196501

PATIENT
  Age: 73 Year
  Sex: Male
  Weight: 108 kg

DRUGS (6)
  1. FLUCONAZOLE. [Suspect]
     Active Substance: FLUCONAZOLE
     Indication: ACUTE MYELOID LEUKAEMIA
     Dosage: 200 MG, 2X/DAY
  2. LEVOFLOXACIN. [Suspect]
     Active Substance: LEVOFLOXACIN
     Indication: NEUTROPENIA
     Dosage: 500 MG, 1X/DAY
  3. VFEND [Suspect]
     Active Substance: VORICONAZOLE
     Dosage: UNK
     Dates: start: 20160325, end: 20160330
  4. VFEND [Suspect]
     Active Substance: VORICONAZOLE
     Indication: PULMONARY MYCOSIS
     Dosage: 200 MG, 2X/DAY
     Dates: start: 201507, end: 201602
  5. VFEND [Suspect]
     Active Substance: VORICONAZOLE
     Indication: PNEUMONIA FUNGAL
     Dosage: UNK
     Dates: start: 201602, end: 20160331
  6. ACICLOVIR [Suspect]
     Active Substance: ACYCLOVIR
     Indication: NEUTROPENIA
     Dosage: 400 MG, 2X/DAY

REACTIONS (4)
  - Oncologic complication [Fatal]
  - Cerebrovascular accident [Fatal]
  - Acute myeloid leukaemia [Fatal]
  - Pneumonia [Fatal]

NARRATIVE: CASE EVENT DATE: 20160318
